FAERS Safety Report 6134116-9 (Version None)
Quarter: 2009Q1

REPORT INFORMATION
  Report Type: 
  Country: None (occurrence: None)
  Receive Date: 20090326
  Receipt Date: 20090205
  Transmission Date: 20090719
  Serious: Yes (Hospitalization)
  Sender: FDA-Public Use
  Company Number: AU-AVENTIS-200912769GDDC

PATIENT
  Age: 64 Year
  Sex: Male
  Weight: 96 kg

DRUGS (12)
  1. METRONIDAZOLE [Suspect]
  2. RIMONABANT [Suspect]
     Route: 048
  3. ENDEP [Concomitant]
     Route: 048
  4. LIPITOR [Concomitant]
     Route: 048
  5. ACIMAX                             /00661201/ [Concomitant]
     Route: 048
  6. RAMIPRIL [Concomitant]
     Route: 048
  7. AMIODARONE HCL [Concomitant]
     Route: 048
  8. CELEBREX [Concomitant]
     Route: 048
  9. ASPIRIN [Concomitant]
     Route: 048
  10. METOPROLOL TARTRATE [Concomitant]
     Route: 048
  11. FUROSEMIDE [Concomitant]
     Route: 048
  12. PANAMOX [Concomitant]
     Dosage: DOSE QUANTITY: 2
     Route: 048

REACTIONS (1)
  - DIARRHOEA [None]
